FAERS Safety Report 18485358 (Version 1)
Quarter: 2020Q4

REPORT INFORMATION
  Report Type: Spontaneous
  Country: US (occurrence: US)
  Receive Date: 20201110
  Receipt Date: 20201110
  Transmission Date: 20210114
  Serious: Yes (Other)
  Sender: FDA-Public Use
  Company Number: None

PATIENT
  Age: 40 Year
  Sex: Female
  Weight: 149.9 kg

DRUGS (1)
  1. REMDESIVIR. [Suspect]
     Active Substance: REMDESIVIR
     Indication: COVID-19 PNEUMONIA
     Dosage: ?          OTHER FREQUENCY:ONCE;?
     Route: 042
     Dates: start: 20201108, end: 20201108

REACTIONS (14)
  - Swelling face [None]
  - Tachycardia [None]
  - Dyspnoea [None]
  - Dysphagia [None]
  - Eye swelling [None]
  - Flushing [None]
  - Speech disorder [None]
  - Hyperhidrosis [None]
  - Stridor [None]
  - Feeling hot [None]
  - Red man syndrome [None]
  - Infusion related reaction [None]
  - Erythema [None]
  - Anaphylactic reaction [None]

NARRATIVE: CASE EVENT DATE: 20201108
